FAERS Safety Report 19817277 (Version 2)
Quarter: 2021Q3

REPORT INFORMATION
  Report Type: Report from Study
  Country: None (occurrence: CZ)
  Receive Date: 20210911
  Receipt Date: 20210914
  Transmission Date: 20211014
  Serious: Yes (Death, Hospitalization)
  Sender: FDA-Public Use
  Company Number: CZ-ABBVIE-21K-217-4074552-00

PATIENT
  Sex: Female
  Weight: 55 kg

DRUGS (2)
  1. DUODOPA [Suspect]
     Active Substance: CARBIDOPA\LEVODOPA
     Indication: PARKINSON^S DISEASE
     Dosage: MORNING DOSE: 10 ML, CONTINUOUS DOSE:N3 ML/H, EXTRA DOSE: 2 ML?20 MG/ML 5 MG/ML GEL
     Route: 050
  2. DUODOPA [Suspect]
     Active Substance: CARBIDOPA\LEVODOPA

REACTIONS (7)
  - Fluid intake reduced [Unknown]
  - Oesophageal cancer metastatic [Fatal]
  - Dysphagia [Not Recovered/Not Resolved]
  - Pulmonary embolism [Fatal]
  - Feeding disorder [Unknown]
  - Lung neoplasm malignant [Fatal]
  - Weight decreased [Not Recovered/Not Resolved]
